FAERS Safety Report 7960558-2 (Version None)
Quarter: 2011Q4

REPORT INFORMATION
  Report Type: 
  Country: None (occurrence: None)
  Receive Date: 20111206
  Receipt Date: 20111130
  Transmission Date: 20120403
  Serious: Yes (Other)
  Sender: FDA-Public Use
  Company Number: PHEH2011US06201

PATIENT
  Sex: Female
  Weight: 68.027 kg

DRUGS (13)
  1. ASPIRIN [Concomitant]
     Dosage: 81 MG, QD
     Route: 048
  2. ACETAMINOPHEN [Concomitant]
     Dosage: 500 MG, QD
  3. VITAMIN D [Concomitant]
     Dosage: 4000 IU, QD
  4. GILENYA [Suspect]
     Indication: RELAPSING-REMITTING MULTIPLE SCLEROSIS
     Dosage: 0.5 MG, QD
     Route: 048
     Dates: start: 20110527
  5. CHANTIX [Concomitant]
     Dosage: 1 DF, BID
     Route: 048
  6. IBUPROFEN [Concomitant]
     Dosage: 400 MG, BID
  7. OXYBUTYNIN [Concomitant]
     Dosage: 2 DF, UNK
     Route: 048
  8. BACLOFEN [Concomitant]
     Dosage: 5 MG, BID
     Route: 048
  9. AMINOPYRIDINE [Concomitant]
     Dosage: 1 DF, BID
     Route: 048
  10. GILENYA [Suspect]
     Dosage: 2 DF, UNK
  11. VITAMIN B-12 [Concomitant]
     Dosage: 500 UG, QD
  12. EPIPEN [Concomitant]
     Dosage: 0.3 MG / 0.3ML, PRN
  13. STOOL SOFTENER [Concomitant]
     Dosage: UNK UKN, QW2

REACTIONS (9)
  - HYPOAESTHESIA [None]
  - DYSKINESIA [None]
  - CONTUSION [None]
  - TREMOR [None]
  - SALIVARY GLAND ENLARGEMENT [None]
  - PARAESTHESIA [None]
  - RASH [None]
  - OVERDOSE [None]
  - HEAT RASH [None]
